FAERS Safety Report 12838667 (Version 3)
Quarter: 2016Q4

REPORT INFORMATION
  Report Type: Spontaneous
  Country: US (occurrence: US)
  Receive Date: 20161012
  Receipt Date: 20161031
  Transmission Date: 20170207
  Serious: Yes (Hospitalization)
  Sender: FDA-Public Use
  Company Number: US-009507513-1610USA001649

PATIENT
  Age: 46 Year
  Sex: Female

DRUGS (1)
  1. ZEPATIER [Suspect]
     Active Substance: ELBASVIR\GRAZOPREVIR
     Indication: HEPATITIS C
     Dosage: 50/100 MG TABLET, 1 TABLET, DAILY
     Route: 048
     Dates: start: 20160825

REACTIONS (1)
  - Dehydration [Unknown]

NARRATIVE: CASE EVENT DATE: 201609
